FAERS Safety Report 25706636 (Version 1)
Quarter: 2025Q3

REPORT INFORMATION
  Report Type: Report from Study
  Country: US (occurrence: US)
  Receive Date: 20250820
  Receipt Date: 20250820
  Transmission Date: 20251021
  Serious: Yes (Other)
  Sender: JAZZ
  Company Number: US-JAZZ PHARMACEUTICALS-2025-US-019883

PATIENT
  Sex: Female

DRUGS (2)
  1. XYWAV [Suspect]
     Active Substance: CALCIUM OXYBATE\MAGNESIUM OXYBATE\POTASSIUM OXYBATE\SODIUM OXYBATE
     Indication: Hypersomnia
  2. ONDANSETRON ODT [ONDANSETRON] [Concomitant]
     Indication: Product used for unknown indication

REACTIONS (9)
  - Neuropathy peripheral [Unknown]
  - Hypnopompic hallucination [Unknown]
  - Dermatitis [Unknown]
  - Eczema [Unknown]
  - Ventricular extrasystoles [Unknown]
  - Attention deficit hyperactivity disorder [Unknown]
  - Fatigue [Unknown]
  - Abnormal dreams [Unknown]
  - Sleep paralysis [Unknown]
